FAERS Safety Report 10865685 (Version 2)
Quarter: 2015Q3

REPORT INFORMATION
  Report Type: Spontaneous
  Country: US (occurrence: US)
  Receive Date: 20150224
  Receipt Date: 20150831
  Transmission Date: 20151125
  Serious: No
  Sender: FDA-Public Use
  Company Number: US-GLAXOSMITHKLINE-US2015GSK023815

PATIENT
  Sex: Female

DRUGS (1)
  1. PROMACTA [Suspect]
     Active Substance: ELTROMBOPAG OLAMINE
     Indication: EVANS SYNDROME
     Dosage: 50 MG, QD
     Route: 048
     Dates: start: 20140902

REACTIONS (2)
  - Alopecia [Unknown]
  - Fatigue [Unknown]
